FAERS Safety Report 6297451-X (Version None)
Quarter: 2009Q3

REPORT INFORMATION
  Report Type: 
  Country: None (occurrence: None)
  Receive Date: 20090805
  Receipt Date: 20090602
  Transmission Date: 20100115
  Serious: No
  Sender: FDA-Public Use
  Company Number: US-BAYER-200924054NA

PATIENT
  Age: 49 Year
  Sex: Female
  Weight: 73 kg

DRUGS (3)
  1. MAGNEVIST [Suspect]
     Indication: NUCLEAR MAGNETIC RESONANCE IMAGING
     Dosage: TOTAL DAILY DOSE: 14 ML  UNIT DOSE: 15 ML
     Route: 042
  2. LISINOPRIL [Concomitant]
  3. OXYCODONE [Concomitant]

REACTIONS (2)
  - PRURITUS [None]
  - URTICARIA [None]
